FAERS Safety Report 4379624-6 (Version None)
Quarter: 2004Q2

REPORT INFORMATION
  Report Type: 
  Country: None (occurrence: None)
  Receive Date: 20040617
  Receipt Date: 20040520
  Transmission Date: 20050107
  Serious: No
  Sender: FDA-Public Use
  Company Number: JP-MERCK-0405USA01628

PATIENT
  Age: 65 Year
  Sex: Female

DRUGS (1)
  1. STROMECTOL [Suspect]
     Indication: STRONGYLOIDIASIS
     Route: 048
     Dates: start: 20040501, end: 20040501

REACTIONS (1)
  - HEPATIC FUNCTION ABNORMAL [None]
